FAERS Safety Report 5724293-3 (Version None)
Quarter: 2008Q2

REPORT INFORMATION
  Report Type: 
  Country: None (occurrence: None)
  Receive Date: 20080430
  Receipt Date: 20080421
  Transmission Date: 20081010
  Serious: Yes (Hospitalization)
  Sender: FDA-Public Use
  Company Number: US-ALLERGAN-0804765US

PATIENT
  Sex: Female
  Weight: 58.957 kg

DRUGS (1)
  1. BOTOX [Suspect]
     Indication: MUSCLE SPASTICITY
     Dosage: 800 UNITS, SINGLE
     Route: 030
     Dates: start: 20080404, end: 20080404

REACTIONS (4)
  - DYSPHAGIA [None]
  - DYSPNOEA [None]
  - RESPIRATORY DISTRESS [None]
  - SPEECH DISORDER [None]
